FAERS Safety Report 4292744-X (Version None)
Quarter: 2004Q1

REPORT INFORMATION
  Report Type: 
  Country: None (occurrence: None)
  Receive Date: 20040126
  Receipt Date: 20030904
  Transmission Date: 20041129
  Serious: No
  Sender: FDA-Public Use
  Company Number: USA030946242

PATIENT
  Age: 63 Year
  Sex: Female
  Weight: 68 kg

DRUGS (3)
  1. FORTEO [Suspect]
     Indication: OSTEOPOROSIS
     Dates: start: 20030813
  2. PREDNISONE [Concomitant]
  3. ZANAFLEX [Concomitant]

REACTIONS (3)
  - ASTHENIA [None]
  - CHEST PAIN [None]
  - DYSPNOEA [None]
